FAERS Safety Report 7401250-2 (Version None)
Quarter: 2011Q2

REPORT INFORMATION
  Report Type: 
  Country: None (occurrence: None)
  Receive Date: 20110407
  Receipt Date: 20110329
  Transmission Date: 20111010
  Serious: Yes (Hospitalization)
  Sender: FDA-Public Use
  Company Number: US-ELI_LILLY_AND_COMPANY-US201104000641

PATIENT
  Sex: Female

DRUGS (13)
  1. FORTEO [Suspect]
     Indication: OSTEOPOROSIS
     Dosage: 20 UG, QD
     Dates: start: 20091101, end: 20110322
  2. LISINOPRIL [Concomitant]
  3. CALCIUM [Concomitant]
  4. ENTOCORT EC [Concomitant]
  5. VITAMIN D [Concomitant]
  6. MELOXICAM [Concomitant]
  7. ENABLEX                            /01760402/ [Concomitant]
  8. PLAVIX [Concomitant]
  9. ARICEPT [Concomitant]
  10. LOVASTATIN [Concomitant]
  11. HYDROCHLOROTHIAZIDE [Concomitant]
  12. MULTI-VITAMIN [Concomitant]
  13. OMEPRAZOLE [Concomitant]

REACTIONS (1)
  - URINARY TRACT INFECTION [None]
